FAERS Safety Report 11314653 (Version 4)
Quarter: 2017Q2

REPORT INFORMATION
  Report Type: Report from Study
  Country: KR (occurrence: KR)
  Receive Date: 20150727
  Receipt Date: 20170623
  Transmission Date: 20170829
  Serious: Yes (Hospitalization)
  Sender: FDA-Public Use
  Company Number: KR-EISAI MEDICAL RESEARCH-EC-2015-008877

PATIENT
  Sex: Female
  Weight: 54 kg

DRUGS (9)
  1. TARGIN PR [Concomitant]
  2. LYRICA [Concomitant]
     Active Substance: PREGABALIN
  3. HALAVEN [Suspect]
     Active Substance: ERIBULIN MESYLATE
     Indication: BREAST CANCER METASTATIC
     Route: 041
     Dates: start: 20150624, end: 20151106
  4. DUPHALAC [Concomitant]
     Active Substance: LACTULOSE
  5. CURAN [Concomitant]
     Active Substance: RANITIDINE HYDROCHLORIDE
  6. MAGMIL [Concomitant]
     Active Substance: MAGNESIUM HYDROXIDE
  7. ENTELON [Concomitant]
  8. PARAMACET [Concomitant]
     Active Substance: ACETAMINOPHEN\TRAMADOL
  9. ASPIRIN. [Concomitant]
     Active Substance: ASPIRIN

REACTIONS (2)
  - Neutropenia [Recovered/Resolved]
  - Pyrexia [Recovered/Resolved]

NARRATIVE: CASE EVENT DATE: 20150625
